FAERS Safety Report 17350117 (Version 1)
Quarter: 2020Q1

REPORT INFORMATION
  Report Type: Spontaneous
  Country: GB (occurrence: GB)
  Receive Date: 20200130
  Receipt Date: 20200130
  Transmission Date: 20200409
  Serious: Yes (Hospitalization)
  Sender: FDA-Public Use
  Company Number: GB-TEVA-2020-GB-1177783

PATIENT

DRUGS (6)
  1. ENALAPRIL [Suspect]
     Active Substance: ENALAPRIL
     Route: 063
  2. ASPIRIN. [Suspect]
     Active Substance: ASPIRIN
     Route: 064
  3. CITALOPRAM [Suspect]
     Active Substance: CITALOPRAM HYDROBROMIDE
     Route: 064
  4. RAMIPRIL. [Suspect]
     Active Substance: RAMIPRIL
     Route: 064
  5. FOLIC ACID. [Suspect]
     Active Substance: FOLIC ACID
     Route: 064
  6. DALTEPARIN [Suspect]
     Active Substance: DALTEPARIN
     Route: 064

REACTIONS (5)
  - Meconium stain [Unknown]
  - Exposure via breast milk [Unknown]
  - Foetal exposure during pregnancy [Unknown]
  - Small for dates baby [Unknown]
  - Foetal distress syndrome [Unknown]
